FAERS Safety Report 9458216 (Version 1)
Quarter: 2013Q3

REPORT INFORMATION
  Report Type: Spontaneous
  Country: US (occurrence: US)
  Receive Date: 20130814
  Receipt Date: 20130814
  Transmission Date: 20140515
  Serious: No
  Sender: FDA-Public Use
  Company Number: US-BAYER-2013-098061

PATIENT
  Age: 82 Year
  Sex: Female
  Weight: 59 kg

DRUGS (3)
  1. ALEVE CAPLET [Suspect]
     Indication: ANALGESIC THERAPY
     Dosage: 1-2,  OTHER FREQUENCY
     Route: 048
  2. OXYCONTIN [Concomitant]
     Dosage: 10 MG, UNK
  3. OXYCODONE [Concomitant]

REACTIONS (2)
  - Intentional drug misuse [None]
  - Drug ineffective [None]
